FAERS Safety Report 25088633 (Version 1)
Quarter: 2025Q1

REPORT INFORMATION
  Report Type: Spontaneous
  Country: US (occurrence: None)
  Receive Date: 20250317
  Receipt Date: 20250317
  Transmission Date: 20250409
  Serious: Yes (Other)
  Sender: FDA-CTU
  Company Number: None

PATIENT
  Age: 57 Year
  Sex: Male

DRUGS (1)
  1. POMALYST [Suspect]
     Active Substance: POMALIDOMIDE
     Indication: Monoclonal gammopathy
     Dosage: 4MG QD ORAL?
     Route: 048
     Dates: start: 20250313

REACTIONS (2)
  - Off label use [None]
  - Monoclonal gammopathy [None]

NARRATIVE: CASE EVENT DATE: 20250312
